FAERS Safety Report 9511283 (Version 1)
Quarter: 2013Q3

REPORT INFORMATION
  Report Type: Spontaneous
  Country: US (occurrence: None)
  Receive Date: 20130909
  Receipt Date: 20130909
  Transmission Date: 20140515
  Serious: No
  Sender: FDA-Public Use
  Company Number: None

PATIENT
  Age: 64 Year
  Sex: Female
  Weight: 90.72 kg

DRUGS (4)
  1. SYNTHROID 112 MCG [Suspect]
  2. CQ10 [Concomitant]
  3. CALCIUM [Concomitant]
  4. FISH OIL [Concomitant]

REACTIONS (7)
  - Irritability [None]
  - Insomnia [None]
  - Depression [None]
  - Suicidal ideation [None]
  - Angina pectoris [None]
  - Thyroid cancer [None]
  - Drug intolerance [None]
